FAERS Safety Report 5097087-2 (Version None)
Quarter: 2006Q3

REPORT INFORMATION
  Report Type: 
  Country: None (occurrence: None)
  Receive Date: 20060831
  Receipt Date: 20060818
  Transmission Date: 20061208
  Serious: Yes (Hospitalization)
  Sender: FDA-Public Use
  Company Number: 2006BH011605

PATIENT
  Age: 79 Year
  Sex: Female
  Weight: 55 kg

DRUGS (1)
  1. GAMMAGARD S/D [Suspect]
     Indication: NEUROPATHY
     Dosage: 30 GM; EVERY WEEK; IV
     Route: 042
     Dates: start: 20060602, end: 20060602

REACTIONS (6)
  - CHEST DISCOMFORT [None]
  - COUGH [None]
  - DYSPHAGIA [None]
  - DYSPNOEA [None]
  - MALAISE [None]
  - THROAT TIGHTNESS [None]
